FAERS Safety Report 25787350 (Version 1)
Quarter: 2025Q3

REPORT INFORMATION
  Report Type: Other
  Country: CA (occurrence: CA)
  Receive Date: 20250910
  Receipt Date: 20250910
  Transmission Date: 20251021
  Serious: Yes (Hospitalization, Other)
  Sender: INCYTE
  Company Number: CA-INCYTE CORPORATION-2025IN009746

PATIENT
  Age: 72 Year
  Weight: 114 kg

DRUGS (4)
  1. OPZELURA [Suspect]
     Active Substance: RUXOLITINIB PHOSPHATE
  2. CLOBETASOL PROPIONATE [Concomitant]
     Active Substance: CLOBETASOL PROPIONATE
     Indication: Product used for unknown indication
     Route: 065
  3. HYDROCORTISONE [Concomitant]
     Active Substance: HYDROCORTISONE
     Indication: Product used for unknown indication
     Route: 065
  4. TACROLIMUS [Concomitant]
     Active Substance: TACROLIMUS
     Indication: Product used for unknown indication
     Route: 065

REACTIONS (11)
  - Mucormycosis [Recovered/Resolved]
  - Necrosis [Recovered/Resolved]
  - Neoplasm skin [Recovered/Resolved]
  - Carbuncle [Recovered/Resolved]
  - Cellulitis [Recovered/Resolved]
  - Erythema [Recovered/Resolved]
  - Herpes dermatitis [Recovered/Resolved]
  - Oedema [Recovered/Resolved]
  - Periorbital oedema [Recovered/Resolved]
  - Skin reaction [Recovered/Resolved]
  - Staphylococcal abscess [Recovered/Resolved]
